FAERS Safety Report 4895642-3 (Version None)
Quarter: 2006Q1

REPORT INFORMATION
  Report Type: 
  Country: None (occurrence: None)
  Receive Date: 20060125
  Receipt Date: 20060113
  Transmission Date: 20060701
  Serious: Yes (Hospitalization, Other)
  Sender: FDA-Public Use
  Company Number: KII-2006-0020734

PATIENT
  Age: 52 Year
  Sex: Male
  Weight: 68 kg

DRUGS (2)
  1. OXYCONTIN [Suspect]
     Dosage: ORAL
     Route: 048
  2. BENZODIAZEPINE DERIVATIVES () [Suspect]
     Dosage: ORAL
     Route: 048

REACTIONS (10)
  - BLOOD SODIUM DECREASED [None]
  - CONFUSIONAL STATE [None]
  - CSF WHITE BLOOD CELL COUNT INCREASED [None]
  - DISORIENTATION [None]
  - FEELING COLD [None]
  - HAEMATOCRIT DECREASED [None]
  - HALLUCINATIONS, MIXED [None]
  - LETHARGY [None]
  - PATIENT RESTRAINT [None]
  - PSYCHOMOTOR HYPERACTIVITY [None]
